FAERS Safety Report 14222146 (Version 1)
Quarter: 2017Q4

REPORT INFORMATION
  Report Type: Report from Study
  Country: None (occurrence: US)
  Receive Date: 20171124
  Receipt Date: 20171124
  Transmission Date: 20180321
  Serious: Yes (Hospitalization)
  Sender: FDA-Public Use
  Company Number: US-ABBVIE-17K-163-2168321-00

PATIENT
  Age: 62 Year
  Sex: Male

DRUGS (1)
  1. HUMIRA [Suspect]
     Active Substance: ADALIMUMAB
     Indication: ANKYLOSING SPONDYLITIS
     Route: 058
     Dates: start: 201701

REACTIONS (5)
  - Fall [Recovered/Resolved]
  - Wound infection staphylococcal [Unknown]
  - Skin abrasion [Unknown]
  - Foot fracture [Recovering/Resolving]
  - Osteomyelitis bacterial [Recovering/Resolving]

NARRATIVE: CASE EVENT DATE: 201709
